FAERS Safety Report 12950010 (Version 1)
Quarter: 2016Q4

REPORT INFORMATION
  Report Type: Spontaneous
  Country: US (occurrence: US)
  Receive Date: 20161117
  Receipt Date: 20161117
  Transmission Date: 20170207
  Serious: Yes (Other)
  Sender: FDA-Public Use
  Company Number: None

PATIENT
  Age: 68 Year
  Sex: Female
  Weight: 49.44 kg

DRUGS (7)
  1. VITAMIN D [Concomitant]
     Active Substance: CHOLECALCIFEROL
  2. VITAMIN C [Concomitant]
     Active Substance: ASCORBIC ACID
  3. VITAMIN B12 [Concomitant]
     Active Substance: CYANOCOBALAMIN
  4. VITAMIN E [Concomitant]
     Active Substance: .ALPHA.-TOCOPHEROL
  5. CELECOXIB LUPIN PHARMACY [Suspect]
     Active Substance: CELECOXIB
     Indication: RHEUMATOID ARTHRITIS
     Dosage: CELECOXIB - 2 CAPSULES/DAY AM + PM WITH FOOD - PO - BID
     Route: 048
     Dates: start: 201607, end: 20161015
  6. CALCIUM [Concomitant]
     Active Substance: CALCIUM
  7. GLUCOSAMINE [Concomitant]
     Active Substance: GLUCOSAMINE

REACTIONS (4)
  - Headache [None]
  - Pain [None]
  - Nausea [None]
  - Urine analysis abnormal [None]

NARRATIVE: CASE EVENT DATE: 20161008
